FAERS Safety Report 15729833 (Version 1)
Quarter: 2018Q4

REPORT INFORMATION
  Report Type: Spontaneous
  Country: IT (occurrence: IT)
  Receive Date: 20181217
  Receipt Date: 20181217
  Transmission Date: 20190205
  Serious: Yes (Hospitalization)
  Sender: FDA-Public Use
  Company Number: IT-HIKMA PHARMACEUTICALS USA INC.-IT-H14001-18-08893

PATIENT
  Age: 53 Year
  Sex: Male

DRUGS (3)
  1. CITARABINA HIKMA 2 G/20ML SOLUZIONE INIETTABILE [Suspect]
     Active Substance: CYTARABINE
     Indication: ACUTE MYELOID LEUKAEMIA
     Dosage: IN TOTAL
     Route: 042
     Dates: start: 20180826, end: 20180826
  2. IDARUBICIN HYDROCHLORIDE. [Suspect]
     Active Substance: IDARUBICIN HYDROCHLORIDE
     Indication: ACUTE MYELOID LEUKAEMIA
     Dosage: IN TOTAL
     Route: 042
     Dates: start: 20180826, end: 20180826
  3. CITARABINA HIKMA 2 G/20ML SOLUZIONE INIETTABILE [Suspect]
     Active Substance: CYTARABINE
     Dosage: IN TOTAL
     Route: 042
     Dates: start: 20180829, end: 20180829

REACTIONS (1)
  - Febrile neutropenia [Recovering/Resolving]

NARRATIVE: CASE EVENT DATE: 20180905
